FAERS Safety Report 13007476 (Version 3)
Quarter: 2017Q2

REPORT INFORMATION
  Report Type: Spontaneous
  Country: US (occurrence: US)
  Receive Date: 20161207
  Receipt Date: 20170428
  Transmission Date: 20170830
  Serious: Yes (Other)
  Sender: FDA-Public Use
  Company Number: US-GLAXOSMITHKLINE-US2016181145

PATIENT
  Age: 88 Year
  Sex: Female

DRUGS (5)
  1. SALBUTAMOL SULFATE [Concomitant]
     Active Substance: ALBUTEROL SULFATE
  2. PREDNISONE. [Concomitant]
     Active Substance: PREDNISONE
  3. BREO ELLIPTA [Suspect]
     Active Substance: FLUTICASONE FUROATE\VILANTEROL TRIFENATATE
     Indication: CHRONIC OBSTRUCTIVE PULMONARY DISEASE
     Dosage: 1 PUFF(S), QD
     Route: 055
     Dates: start: 20161117, end: 20161118
  4. BREO ELLIPTA [Suspect]
     Active Substance: FLUTICASONE FUROATE\VILANTEROL TRIFENATATE
     Indication: ASTHMA
  5. CHLORTRIMETON [Concomitant]
     Active Substance: CHLORPHENIRAMINE MALEATE

REACTIONS (2)
  - Joint stiffness [Recovered/Resolved]
  - Extraocular muscle paresis [Recovered/Resolved]

NARRATIVE: CASE EVENT DATE: 20161118
